FAERS Safety Report 23914733 (Version 5)
Quarter: 2024Q4

REPORT INFORMATION
  Report Type: Report from Study
  Country: JP (occurrence: JP)
  Receive Date: 20240529
  Receipt Date: 20241226
  Transmission Date: 20250114
  Serious: Yes (Hospitalization)
  Sender: ABBVIE
  Company Number: JP-ABBVIE-5777974

PATIENT
  Age: 36 Year
  Sex: Male
  Weight: 45 kg

DRUGS (5)
  1. RINVOQ [Suspect]
     Active Substance: UPADACITINIB
     Indication: Colitis ulcerative
     Dosage: 45 MILLIGRAM
     Route: 048
     Dates: start: 20240129, end: 20240420
  2. PREDONINE [Suspect]
     Active Substance: PREDNISOLONE
     Indication: Colitis ulcerative
     Route: 041
     Dates: start: 20240206, end: 20240212
  3. PREDONINE [Suspect]
     Active Substance: PREDNISOLONE
     Indication: Colitis ulcerative
     Route: 041
     Dates: start: 20240129, end: 20240205
  4. PREDONINE [Suspect]
     Active Substance: PREDNISOLONE
     Indication: Colitis ulcerative
     Route: 065
  5. PREDONINE [Suspect]
     Active Substance: PREDNISOLONE
     Indication: Colitis ulcerative
     Route: 048
     Dates: start: 20240213, end: 20240309

REACTIONS (6)
  - Colitis ulcerative [Recovered/Resolved]
  - Pneumocystis test positive [Recovered/Resolved]
  - Cytomegalovirus viraemia [Recovered/Resolved]
  - Colitis ulcerative [Not Recovered/Not Resolved]
  - Neuropathy peripheral [Unknown]
  - COVID-19 [Recovered/Resolved]

NARRATIVE: CASE EVENT DATE: 20240325
